FAERS Safety Report 17427769 (Version 14)
Quarter: 2021Q3

REPORT INFORMATION
  Report Type: Report from Study
  Country: US (occurrence: US)
  Receive Date: 20200218
  Receipt Date: 20210923
  Transmission Date: 20211014
  Serious: Yes (Death, Hospitalization, Other)
  Sender: FDA-Public Use
  Company Number: NVSC2020US041103

PATIENT
  Age: 65 Year
  Sex: Male
  Weight: 88.89 kg

DRUGS (15)
  1. TREPROSTINIL. [Suspect]
     Active Substance: TREPROSTINIL
     Dosage: UNK UNK, CONT (10 NG/KG/MIN)
     Route: 042
     Dates: start: 20200217
  2. ADCIRCA [Concomitant]
     Active Substance: TADALAFIL
     Indication: PULMONARY ARTERIAL HYPERTENSION
     Dosage: UNK
     Route: 065
  3. OPSUMIT [Concomitant]
     Active Substance: MACITENTAN
     Indication: PULMONARY ARTERIAL HYPERTENSION
     Dosage: UNK
     Route: 065
  4. TREPROSTINIL. [Suspect]
     Active Substance: TREPROSTINIL
     Indication: PULMONARY ARTERIAL HYPERTENSION
     Dosage: UNK UNK, CONT (7 NG/KG/MIN)
     Route: 042
  5. TREPROSTINIL. [Suspect]
     Active Substance: TREPROSTINIL
     Dosage: UNK UNK, CONT (24 NG/KG/MIN)
     Route: 042
  6. TREPROSTINIL. [Suspect]
     Active Substance: TREPROSTINIL
     Dosage: UNK UNK, CONT (22 NG/KG/MIN)
     Route: 042
     Dates: start: 20200217
  7. TREPROSTINIL. [Suspect]
     Active Substance: TREPROSTINIL
     Dosage: UNK, CONT (28 NG/KG/MIN)
     Route: 042
     Dates: start: 20200217
  8. DILTIAZEM. [Concomitant]
     Active Substance: DILTIAZEM
     Indication: PULMONARY ARTERIAL HYPERTENSION
     Dosage: UNK
     Route: 065
  9. UPTRAVI [Suspect]
     Active Substance: SELEXIPAG
     Indication: PULMONARY ARTERIAL HYPERTENSION
     Dosage: UNK
     Route: 065
  10. TREPROSTINIL. [Suspect]
     Active Substance: TREPROSTINIL
     Dosage: UNK UNK, CONT (22 NG/KG/MIN)
     Route: 042
     Dates: start: 20200217
  11. ELIQUIS [Concomitant]
     Active Substance: APIXABAN
     Indication: PULMONARY ARTERIAL HYPERTENSION
     Dosage: UNK
     Route: 065
  12. TREPROSTINIL. [Suspect]
     Active Substance: TREPROSTINIL
     Dosage: UNK UNK, CONT (18 NG/KG/MIN)
     Route: 042
  13. TREPROSTINIL. [Suspect]
     Active Substance: TREPROSTINIL
     Dosage: UNK UNK, CONT (26 NG/KG/MIN)
     Route: 042
     Dates: start: 20200217
  14. TREPROSTINIL. [Suspect]
     Active Substance: TREPROSTINIL
     Dosage: UNK UNK, CONT (16 NG/KG/MIN)
     Route: 042
  15. ADEMPAS [Concomitant]
     Active Substance: RIOCIGUAT
     Indication: PRODUCT USED FOR UNKNOWN INDICATION
     Dosage: UNK
     Route: 065

REACTIONS (20)
  - Hypoxia [Unknown]
  - Heart rate abnormal [Unknown]
  - Rash [Unknown]
  - Pulmonary hypertension [Unknown]
  - Pneumonia [Unknown]
  - Blood potassium decreased [Recovering/Resolving]
  - Injection site irritation [Not Recovered/Not Resolved]
  - Death [Fatal]
  - Fluid retention [Recovering/Resolving]
  - Dyspnoea [Unknown]
  - Injection site erythema [Not Recovered/Not Resolved]
  - Atrial fibrillation [Unknown]
  - Syncope [Unknown]
  - Abdominal pain [Unknown]
  - Respiratory failure [Unknown]
  - Tachycardia [Unknown]
  - Hypokalaemia [Unknown]
  - Heart rate increased [Unknown]
  - Headache [Unknown]
  - Nausea [Unknown]

NARRATIVE: CASE EVENT DATE: 20200709
